FAERS Safety Report 16040380 (Version 1)
Quarter: 2019Q1

REPORT INFORMATION
  Report Type: Report from Study
  Country: IT (occurrence: IT)
  Receive Date: 20190306
  Receipt Date: 20190306
  Transmission Date: 20190418
  Serious: Yes (Other)
  Sender: FDA-Public Use
  Company Number: IT-TEVA-2019-IT-1018725

PATIENT
  Age: 52 Year
  Sex: Female

DRUGS (4)
  1. IGROTON 25 MG COMPRESSE [Concomitant]
     Route: 048
  2. PANTORC 20 MG COMPRESSE GASTRORESISTENTI [Concomitant]
     Active Substance: PANTOPRAZOLE SODIUM
     Route: 048
  3. LEVOPRAID  25 MG/ML GOCCE ORALI SOLUZIONE [Concomitant]
     Route: 048
  4. AMOXICILLIN TRIHYDRATE [Suspect]
     Active Substance: AMOXICILLIN
     Dosage: 2 GRAM DAILY;
     Route: 048
     Dates: start: 20190201, end: 20190201

REACTIONS (2)
  - Rash [Recovered/Resolved]
  - Laryngospasm [Recovered/Resolved]

NARRATIVE: CASE EVENT DATE: 20190201
